FAERS Safety Report 5039493-8 (Version None)
Quarter: 2006Q2

REPORT INFORMATION
  Report Type: 
  Country: None (occurrence: None)
  Receive Date: 20060629
  Receipt Date: 20060619
  Transmission Date: 20061013
  Serious: Yes (Death)
  Sender: FDA-Public Use
  Company Number: US-BRISTOL-MYERS SQUIBB COMPANY-13416052

PATIENT
  Sex: Male

DRUGS (1)
  1. LAC-HYDRIN [Suspect]
     Indication: RASH
     Route: 061

REACTIONS (1)
  - DEATH [None]
